FAERS Safety Report 6056015-3 (Version None)
Quarter: 2009Q1

REPORT INFORMATION
  Report Type: 
  Country: None (occurrence: None)
  Receive Date: 20090126
  Receipt Date: 20090114
  Transmission Date: 20090719
  Serious: Yes (Other)
  Sender: FDA-Public Use
  Company Number: 2009AP000132

PATIENT
  Age: 85 Year
  Sex: Female

DRUGS (9)
  1. PAROXETINE HCL [Suspect]
     Indication: DEPRESSIVE SYMPTOM
     Dosage: 10 MG; PO
     Route: 048
     Dates: start: 20081029, end: 20081113
  2. CALCIUM CARBONATE (CALCIUM CARBONATE) [Concomitant]
  3. ALENDRONIC ACID (ALENDRONIC ACID0 [Concomitant]
  4. ACETYLSALICYLIC ACID SRT [Concomitant]
  5. BISOPROLOL FUMARATE [Concomitant]
  6. INDAPAMIDE [Concomitant]
  7. LANSOPRAZOLE [Concomitant]
  8. PERINDOPRIL ERBUMINE [Concomitant]
  9. SIMVASTATIN [Concomitant]

REACTIONS (2)
  - PALPITATIONS [None]
  - SINUS TACHYCARDIA [None]
